FAERS Safety Report 8484627-6 (Version None)
Quarter: 2012Q3

REPORT INFORMATION
  Report Type: 
  Country: None (occurrence: None)
  Receive Date: 20120703
  Receipt Date: 20120523
  Transmission Date: 20120928
  Serious: No
  Sender: FDA-Public Use
  Company Number: US-TEVA-339810USA

PATIENT
  Sex: Female
  Weight: 104.42 kg

DRUGS (9)
  1. NUVIGIL [Suspect]
     Indication: FATIGUE
     Dosage: 250 MILLIGRAM;
     Route: 048
     Dates: start: 20110301
  2. CITALOPRAM HYDROBROMIDE [Concomitant]
     Indication: DEPRESSION
     Dosage: 20 MILLIGRAM;
     Route: 048
  3. MULTI-VITAMIN [Concomitant]
     Route: 048
  4. FISH OIL [Concomitant]
  5. OMEPRAZOLE [Concomitant]
     Indication: GASTROOESOPHAGEAL REFLUX DISEASE
     Dosage: 20 MILLIGRAM;
     Route: 048
  6. CALCIUM [Concomitant]
     Route: 048
  7. PIOGLITAZONE [Concomitant]
     Indication: DIABETES MELLITUS
     Route: 048
  8. ASPIRIN [Concomitant]
     Route: 048
  9. RAMIPRIL [Concomitant]
     Indication: HYPERTENSION
     Dosage: 10 MILLIGRAM;
     Route: 048

REACTIONS (2)
  - DRUG TOLERANCE [None]
  - OFF LABEL USE [None]
